FAERS Safety Report 24376703 (Version 5)
Quarter: 2025Q3

REPORT INFORMATION
  Report Type: Spontaneous
  Country: EU (occurrence: EU)
  Receive Date: 20240930
  Receipt Date: 20250803
  Transmission Date: 20251021
  Serious: Yes (Other)
  Sender: ALEXION PHARMACEUTICALS
  Company Number: EU-AstraZeneca-CH-00710133A

PATIENT
  Sex: Female
  Weight: 50 kg

DRUGS (8)
  1. SOLIRIS [Suspect]
     Active Substance: ECULIZUMAB
     Indication: Atypical haemolytic uraemic syndrome
  2. SOLIRIS [Suspect]
     Active Substance: ECULIZUMAB
  3. SOLIRIS [Suspect]
     Active Substance: ECULIZUMAB
  4. ISOPTIN [Concomitant]
     Active Substance: VERAPAMIL HYDROCHLORIDE
     Route: 065
  5. URAPIDIL [Concomitant]
     Active Substance: URAPIDIL
  6. UNSPECIFIED INGREDIENT [Concomitant]
     Active Substance: UNSPECIFIED INGREDIENT
     Route: 065
  7. ASPIRIN [Concomitant]
     Active Substance: ASPIRIN
     Dosage: 100 MILLIGRAM, QD
     Route: 065
  8. FIDAXOMICIN [Concomitant]
     Active Substance: FIDAXOMICIN
     Route: 065

REACTIONS (6)
  - Ischaemic stroke [Unknown]
  - Clostridial infection [Unknown]
  - Cerebral venous sinus thrombosis [Unknown]
  - Exposure during pregnancy [Unknown]
  - Peripheral swelling [Unknown]
  - Vasospasm [Unknown]
